FAERS Safety Report 7214781-5 (Version None)
Quarter: 2011Q1

REPORT INFORMATION
  Report Type: 
  Country: None (occurrence: None)
  Receive Date: 20110107
  Receipt Date: 20100211
  Transmission Date: 20110831
  Serious: No
  Sender: FDA-Public Use
  Company Number: A0844030A

PATIENT
  Age: 63 Year
  Sex: Female

DRUGS (2)
  1. MULTIPLE MEDICATION [Concomitant]
  2. LOVAZA [Suspect]
     Dosage: 4CAP TWICE PER DAY
     Route: 048
     Dates: start: 20080101

REACTIONS (1)
  - THYROID FUNCTION TEST ABNORMAL [None]
